FAERS Safety Report 23183667 (Version 1)
Quarter: 2023Q4

REPORT INFORMATION
  Report Type: Other
  Country: None (occurrence: CN)
  Receive Date: 20231114
  Receipt Date: 20231114
  Transmission Date: 20240110
  Serious: Yes (Other)
  Sender: FDA-Public Use
  Company Number: CN-CorePharma LLC-2148235

PATIENT
  Age: 54 Year
  Sex: Female
  Weight: 68 kg

DRUGS (6)
  1. AMLODIPINE BESYLATE [Suspect]
     Active Substance: AMLODIPINE BESYLATE
     Indication: Hypertension
  2. BISOPROLOL FUMARATE [Concomitant]
     Active Substance: BISOPROLOL FUMARATE
  3. SUFENTANIL [Concomitant]
     Active Substance: SUFENTANIL
  4. PROPOFOL [Concomitant]
     Active Substance: PROPOFOL
  5. VECURONIUM [Concomitant]
     Active Substance: VECURONIUM BROMIDE
  6. Remifentynl [Concomitant]
     Route: 042

REACTIONS (1)
  - Hypoxia [Recovered/Resolved]
